APPROVED DRUG PRODUCT: LERIBANE
Active Ingredient: ETHINYL ESTRADIOL; NORETHINDRONE ACETATE
Strength: 0.005MG;1MG
Dosage Form/Route: TABLET;ORAL
Application: A203435 | Product #001 | TE Code: AB
Applicant: NOVAST LABORATORIES LTD
Approved: Jun 3, 2016 | RLD: No | RS: No | Type: RX